FAERS Safety Report 8247683-6 (Version None)
Quarter: 2012Q1

REPORT INFORMATION
  Report Type: 
  Country: None (occurrence: None)
  Receive Date: 20120330
  Receipt Date: 20120328
  Transmission Date: 20120608
  Serious: No
  Sender: FDA-Public Use
  Company Number: SE-PFIZER INC-2012080017

PATIENT
  Age: 33 Year
  Sex: Male

DRUGS (4)
  1. SOMATROPIN [Suspect]
     Indication: OFF LABEL USE
  2. SOMATROPIN [Suspect]
     Indication: MENTAL DISORDER
  3. VITAMIN TAB [Concomitant]
     Dosage: UNK
  4. SOMATROPIN [Suspect]
     Indication: ANXIETY

REACTIONS (1)
  - HYPOAESTHESIA [None]
